FAERS Safety Report 16648154 (Version 2)
Quarter: 2020Q3

REPORT INFORMATION
  Report Type: Spontaneous
  Country: CN (occurrence: CN)
  Receive Date: 20190730
  Receipt Date: 20200702
  Transmission Date: 20201102
  Serious: Yes (Hospitalization, Other)
  Sender: FDA-Public Use
  Company Number: CN-PFIZER INC-2019318042

PATIENT
  Age: 42 Year
  Sex: Female
  Weight: 60 kg

DRUGS (5)
  1. PREDNISOLONE. [Suspect]
     Active Substance: PREDNISOLONE
     Indication: LYMPHOMA
     Dosage: 20 MG, 3X/DAY
     Route: 048
     Dates: start: 20190703, end: 20190707
  2. PHARMORUBICIN [Suspect]
     Active Substance: EPIRUBICIN
     Indication: LYMPHOMA
     Dosage: 40 MG, 1X/DAY
     Route: 041
     Dates: start: 20190705, end: 20190706
  3. CYCLOPHOSPHAMIDE. [Suspect]
     Active Substance: CYCLOPHOSPHAMIDE
     Indication: LYMPHOMA
     Dosage: 1 G, 1X/DAY
     Route: 041
     Dates: start: 20190704, end: 20190704
  4. RITUXIMAB. [Suspect]
     Active Substance: RITUXIMAB
     Indication: LYMPHOMA
     Dosage: 600 MG, 1X/DAY
     Route: 041
     Dates: start: 20190703, end: 20190703
  5. VINCRISTINE SULFATE. [Suspect]
     Active Substance: VINCRISTINE SULFATE
     Indication: LYMPHOMA
     Dosage: 4 MG, 1X/DAY
     Route: 041
     Dates: start: 20190703, end: 20190703

REACTIONS (1)
  - Myelosuppression [Recovered/Resolved]

NARRATIVE: CASE EVENT DATE: 20190716
